FAERS Safety Report 9137467 (Version 1)
Quarter: 2013Q1

REPORT INFORMATION
  Report Type: Spontaneous
  Country: US (occurrence: US)
  Receive Date: 20130219
  Receipt Date: 20130219
  Transmission Date: 20140127
  Serious: No
  Sender: FDA-Public Use
  Company Number: US-BRISTOL-MYERS SQUIBB COMPANY-16829244

PATIENT
  Age: 31 Year
  Sex: Female
  Weight: 81.63 kg

DRUGS (5)
  1. ORENCIA [Suspect]
     Indication: RHEUMATOID ARTHRITIS
     Dosage: INF:9,THERAPY DATES:31JUL12
     Route: 042
     Dates: start: 201201
  2. METHOTREXATE [Concomitant]
  3. LEUCOVORIN [Concomitant]
  4. FOLIC ACID [Concomitant]
  5. TRAMADOL [Concomitant]

REACTIONS (2)
  - Nausea [Unknown]
  - Somnolence [Unknown]
